FAERS Safety Report 4656067-9 (Version None)
Quarter: 2005Q2

REPORT INFORMATION
  Report Type: 
  Country: None (occurrence: None)
  Receive Date: 20050504
  Receipt Date: 20050413
  Transmission Date: 20051028
  Serious: Yes (Hospitalization)
  Sender: FDA-Public Use
  Company Number: 603400

PATIENT
  Age: 59 Year
  Sex: Female
  Weight: 65.3 kg

DRUGS (9)
  1. GAMMAGARD S/D [Suspect]
     Dosage: 21 GM; ONCE; INTRAVENOUS
     Route: 042
     Dates: start: 20040503, end: 20040503
  2. SPORANOX [Concomitant]
  3. NORVASC [Concomitant]
  4. M.V.I. [Concomitant]
  5. CARAFATE [Concomitant]
  6. PREDNISONE [Concomitant]
  7. ACYCLOVIR [Concomitant]
  8. NEXIUM [Concomitant]
  9. BACTRIM DS [Concomitant]

REACTIONS (2)
  - CEREBROVASCULAR ACCIDENT [None]
  - CHILLS [None]
